FAERS Safety Report 6284649-X (Version None)
Quarter: 2009Q3

REPORT INFORMATION
  Report Type: 
  Country: None (occurrence: None)
  Receive Date: 20090727
  Receipt Date: 20090713
  Transmission Date: 20100115
  Serious: Yes (Hospitalization)
  Sender: FDA-Public Use
  Company Number: JP-EISAI INC.-E3810-02994-SPO-JP

PATIENT
  Age: 91 Year
  Sex: Male

DRUGS (9)
  1. PARIET (RABEPRAZOLE) [Suspect]
     Route: 048
  2. HYPEN [Concomitant]
     Route: 048
  3. SELBEX [Concomitant]
     Route: 048
  4. OPALMON [Concomitant]
     Route: 048
  5. CYANOCOBALAMIN [Concomitant]
     Route: 048
  6. ASPIRIN [Concomitant]
     Route: 048
  7. MEVALOTIN [Concomitant]
     Route: 048
  8. PROCYLIN [Concomitant]
     Route: 048
  9. NORVASC [Concomitant]
     Route: 048

REACTIONS (1)
  - PNEUMONIA [None]
